FAERS Safety Report 13771624 (Version 3)
Quarter: 2018Q1

REPORT INFORMATION
  Report Type: Spontaneous
  Country: US (occurrence: US)
  Receive Date: 20170720
  Receipt Date: 20180102
  Transmission Date: 20180508
  Serious: Yes (Hospitalization, Other)
  Sender: FDA-Public Use
  Company Number: US-PFIZER INC-2017311352

PATIENT
  Age: 74 Year
  Sex: Male
  Weight: 84.64 kg

DRUGS (12)
  1. INLYTA [Suspect]
     Active Substance: AXITINIB
     Dosage: REDUCED DOSE
     Route: 048
     Dates: start: 20170630
  2. INLYTA [Suspect]
     Active Substance: AXITINIB
     Indication: METASTATIC RENAL CELL CARCINOMA
     Dosage: 5 MG, ONE TABLET TWICE A DAY
     Route: 048
     Dates: start: 20170627
  3. ATORVASTATIN [Concomitant]
     Active Substance: ATORVASTATIN
     Dosage: UNK
  4. INLYTA [Suspect]
     Active Substance: AXITINIB
     Dosage: 5 MG, 2X/DAY
     Route: 048
     Dates: start: 20170624, end: 20170920
  5. ASPIRIN 81 [Concomitant]
     Active Substance: ASPIRIN
     Dosage: 81 MG, UNK
  6. LOSARTAN. [Concomitant]
     Active Substance: LOSARTAN
     Indication: HYPERTENSION
     Dosage: 50 MG, 1X/DAY (AT NIGHT)
     Route: 048
  7. FINASTERIDE. [Concomitant]
     Active Substance: FINASTERIDE
     Dosage: UNK
  8. CARVEDILOL. [Concomitant]
     Active Substance: CARVEDILOL
     Indication: HYPERTENSION
     Dosage: 12.5 MG, 2X/DAY (EVERY 12 HOURS)
     Route: 048
  9. SOTALOL. [Concomitant]
     Active Substance: SOTALOL
     Dosage: UNK
  10. INLYTA [Suspect]
     Active Substance: AXITINIB
     Dosage: 5 MG, 2X/DAY
     Route: 048
     Dates: start: 201707, end: 20170920
  11. INLYTA [Suspect]
     Active Substance: AXITINIB
     Dosage: 1 DF, 1X/DAY
  12. XARELTO [Concomitant]
     Active Substance: RIVAROXABAN
     Dosage: UNK

REACTIONS (19)
  - Haemoptysis [Unknown]
  - Hypotension [Recovering/Resolving]
  - Gastric disorder [Unknown]
  - Diarrhoea [Unknown]
  - Dizziness [Unknown]
  - Vomiting [Unknown]
  - Thrombocytopenia [Recovered/Resolved]
  - Cardiac failure congestive [Not Recovered/Not Resolved]
  - Dyspnoea [Recovered/Resolved]
  - Lipase increased [Recovered/Resolved]
  - Fatigue [Unknown]
  - Hypothyroidism [Recovered/Resolved]
  - Haematochezia [Unknown]
  - Renal failure [Recovered/Resolved]
  - Haemorrhage [Unknown]
  - Hypertension [Not Recovered/Not Resolved]
  - Asthenia [Unknown]
  - Decreased appetite [Unknown]
  - Dyspnoea [Unknown]

NARRATIVE: CASE EVENT DATE: 20170629
